FAERS Safety Report 6858999-X (Version None)
Quarter: 2010Q3

REPORT INFORMATION
  Report Type: 
  Country: None (occurrence: None)
  Receive Date: 20100719
  Receipt Date: 20080220
  Transmission Date: 20110219
  Serious: No
  Sender: FDA-Public Use
  Company Number: US-PFIZER INC-2008017373

PATIENT
  Sex: Female
  Weight: 63.6 kg

DRUGS (12)
  1. CHANTIX [Suspect]
     Indication: SMOKING CESSATION THERAPY
     Dates: start: 20080213
  2. CYMBALTA [Concomitant]
  3. DRUG, UNSPECIFIED [Concomitant]
  4. WELLBUTRIN [Concomitant]
  5. LISINOPRIL [Concomitant]
  6. NORTRIPTYLINE [Concomitant]
  7. WARFARIN SODIUM [Concomitant]
  8. POTASSIUM CHLORIDE [Concomitant]
  9. LASIX [Concomitant]
  10. COREG [Concomitant]
  11. XANAX [Concomitant]
  12. AMBIEN [Concomitant]

REACTIONS (2)
  - ABNORMAL DREAMS [None]
  - INSOMNIA [None]
